FAERS Safety Report 13818623 (Version 1)
Quarter: 2017Q3

REPORT INFORMATION
  Report Type: Spontaneous
  Country: US (occurrence: US)
  Receive Date: 20170731
  Receipt Date: 20170731
  Transmission Date: 20171127
  Serious: No
  Sender: FDA-Public Use
  Company Number: US-TEIKOKU PHARMA USA-TPU2017-00305

PATIENT
  Sex: Female
  Weight: 61.29 kg

DRUGS (4)
  1. NORCO [Concomitant]
     Active Substance: ACETAMINOPHEN\HYDROCODONE BITARTRATE
     Indication: BACK PAIN
     Dosage: 5/325 MG, TWICE PER DAY, AS NEEDED.
  2. LIDODERM [Suspect]
     Active Substance: LIDOCAINE
     Indication: BACK PAIN
     Dosage: 1-2 PATCHES PER DAY, AS NEEDED. SOMETIMES CUT IN HALF ON EACH SIDE OF BACK
     Dates: start: 201605
  3. ROBAXIN [Concomitant]
     Active Substance: METHOCARBAMOL
     Indication: BACK PAIN
     Dates: start: 2015
  4. GABAPENTIN. [Concomitant]
     Active Substance: GABAPENTIN
     Indication: NEURALGIA
     Dates: start: 2015

REACTIONS (3)
  - Skin burning sensation [Unknown]
  - Application site rash [Unknown]
  - Feeling hot [Unknown]
